FAERS Safety Report 14534678 (Version 3)
Quarter: 2018Q1

REPORT INFORMATION
  Report Type: Spontaneous
  Country: US (occurrence: US)
  Receive Date: 20180215
  Receipt Date: 20180313
  Transmission Date: 20180509
  Serious: Yes (Other)
  Sender: FDA-Public Use
  Company Number: US-BAUSCH-BL-2017-023252

PATIENT
  Sex: Female
  Weight: 65.83 kg

DRUGS (8)
  1. CARDIZEM CD [Suspect]
     Active Substance: DILTIAZEM HYDROCHLORIDE
     Route: 048
     Dates: end: 2017
  2. HYDROCHLOROTHIAZIDE. [Concomitant]
     Active Substance: HYDROCHLOROTHIAZIDE
     Indication: PRODUCT USED FOR UNKNOWN INDICATION
     Route: 065
  3. CARDIZEM CD [Suspect]
     Active Substance: DILTIAZEM HYDROCHLORIDE
     Indication: HYPERTENSION
     Dosage: STARTED TAKING IN 1990S^
     Route: 048
     Dates: end: 2012
  4. CARDIZEM CD [Suspect]
     Active Substance: DILTIAZEM HYDROCHLORIDE
     Route: 048
     Dates: start: 2014, end: 2014
  5. PREDNISONE. [Concomitant]
     Active Substance: PREDNISONE
     Indication: PRODUCT USED FOR UNKNOWN INDICATION
     Route: 065
  6. OMEPRAZOLE. [Concomitant]
     Active Substance: OMEPRAZOLE
     Indication: GASTROOESOPHAGEAL REFLUX DISEASE
     Route: 065
  7. POTASSIUM [Concomitant]
     Active Substance: POTASSIUM
     Indication: PRODUCT USED FOR UNKNOWN INDICATION
     Route: 065
  8. DILTIAZEM HCL [Suspect]
     Active Substance: DILTIAZEM HYDROCHLORIDE
     Indication: HYPERTENSION
     Dosage: EXTENDED RELEASE CAPSULES
     Route: 048
     Dates: start: 2017

REACTIONS (11)
  - Hypertension [Not Recovered/Not Resolved]
  - Adverse drug reaction [Unknown]
  - Malaise [Not Recovered/Not Resolved]
  - Inability to afford medication [Unknown]
  - Product substitution issue [Unknown]
  - Pruritus [Not Recovered/Not Resolved]
  - Systemic lupus erythematosus [Unknown]
  - Asthenia [Not Recovered/Not Resolved]
  - Blood pressure fluctuation [Unknown]
  - Hypersensitivity [Unknown]
  - Dizziness [Not Recovered/Not Resolved]

NARRATIVE: CASE EVENT DATE: 2012
